FAERS Safety Report 11693215 (Version 3)
Quarter: 2016Q3

REPORT INFORMATION
  Report Type: Spontaneous
  Country: US (occurrence: US)
  Receive Date: 20151103
  Receipt Date: 20160701
  Transmission Date: 20161109
  Serious: Yes (Hospitalization, Other)
  Sender: FDA-Public Use
  Company Number: US-GLAXOSMITHKLINE-US2015GSK156200

PATIENT
  Age: 77 Year
  Sex: Female

DRUGS (2)
  1. RYTHMOL SR [Suspect]
     Active Substance: PROPAFENONE HYDROCHLORIDE
     Indication: SINUS NODE DYSFUNCTION
  2. RYTHMOL SR [Suspect]
     Active Substance: PROPAFENONE HYDROCHLORIDE
     Indication: ATRIAL FIBRILLATION
     Dosage: UNK
     Dates: start: 2011

REACTIONS (6)
  - Rehabilitation therapy [Recovered/Resolved]
  - Fall [Unknown]
  - Hip fracture [Unknown]
  - Drug dose omission [Unknown]
  - Neoplasm malignant [Unknown]
  - Surgery [Unknown]

NARRATIVE: CASE EVENT DATE: 20151001
